FAERS Safety Report 9295017 (Version 1)
Quarter: 2013Q2

REPORT INFORMATION
  Report Type: Spontaneous
  Country: US (occurrence: US)
  Receive Date: 20130517
  Receipt Date: 20130517
  Transmission Date: 20140414
  Serious: Yes (Other)
  Sender: FDA-Public Use
  Company Number: US-PFIZER INC-2013150628

PATIENT
  Sex: Male

DRUGS (7)
  1. AMLODIPINE BESILATE [Suspect]
     Dosage: UNK
  2. LIPITOR [Suspect]
     Dosage: UNK
  3. DOXAZOSIN MESILATE [Suspect]
     Dosage: UNK
  4. QUINAPRIL HCL [Suspect]
     Dosage: UNK
  5. METFORMIN HCL [Suspect]
     Dosage: UNK
  6. PROZAC [Suspect]
     Dosage: UNK
  7. ABILIFY [Suspect]
     Dosage: UNK

REACTIONS (1)
  - Atrial fibrillation [Recovered/Resolved]
